FAERS Safety Report 22137336 (Version 1)
Quarter: 2023Q1

REPORT INFORMATION
  Report Type: Spontaneous
  Country: US (occurrence: US)
  Receive Date: 20230325
  Receipt Date: 20230325
  Transmission Date: 20230417
  Serious: Yes (Death, Life-Threatening, Hospitalization, Other)
  Sender: FDA-Public Use
  Company Number: US-MLMSERVICE-20230309-4153272-1

PATIENT
  Age: 70 Year
  Sex: Male

DRUGS (1)
  1. AMIODARONE HYDROCHLORIDE [Suspect]
     Active Substance: AMIODARONE HYDROCHLORIDE
     Indication: Atrial fibrillation
     Dosage: 400 MILLIGRAM, ONCE A DAY
     Route: 065

REACTIONS (5)
  - Acute respiratory distress syndrome [Fatal]
  - Blood thyroid stimulating hormone decreased [Fatal]
  - Hypertransaminasaemia [Fatal]
  - Pulmonary alveolar haemorrhage [Fatal]
  - Thyroxine free increased [Fatal]
